FAERS Safety Report 23593526 (Version 1)
Quarter: 2024Q1

REPORT INFORMATION
  Report Type: Spontaneous
  Country: US (occurrence: US)
  Receive Date: 20240304
  Receipt Date: 20240304
  Transmission Date: 20240410
  Serious: No
  Sender: FDA-Public Use
  Company Number: US-BAUSCHBL-2024BNL002391

PATIENT
  Sex: Female

DRUGS (1)
  1. VYZULTA [Suspect]
     Active Substance: LATANOPROSTENE BUNOD
     Indication: Product used for unknown indication
     Dosage: 1 DROP IN THE RIGHT EYE AT NIGHT
     Route: 047

REACTIONS (3)
  - Eye pain [Unknown]
  - Eye irritation [Unknown]
  - Expired product administered [Unknown]
